FAERS Safety Report 8848984 (Version 1)
Quarter: 2012Q4

REPORT INFORMATION
  Report Type: Spontaneous
  Country: US (occurrence: None)
  Receive Date: 20121016
  Receipt Date: 20121016
  Transmission Date: 20130627
  Serious: Yes (Other)
  Sender: FDA-Public Use
  Company Number: E2B_00000420

PATIENT
  Sex: Female
  Weight: 48.99 kg

DRUGS (2)
  1. LEVETIRACETAM [Suspect]
     Indication: EPILEPSY
     Dosage: 500 mg  (250 mg, 2 in 1 D), Per oral
     Route: 048
     Dates: start: 20120219, end: 20121003
  2. CARBAMAZEPINE [Concomitant]

REACTIONS (3)
  - Hypoaesthesia [None]
  - Convulsion [None]
  - Drug ineffective [None]
